FAERS Safety Report 7146034-8 (Version None)
Quarter: 2010Q4

REPORT INFORMATION
  Report Type: 
  Country: None (occurrence: None)
  Receive Date: 20101123
  Receipt Date: 20101110
  Transmission Date: 20110411
  Serious: Yes (Death, Hospitalization)
  Sender: FDA-Public Use
  Company Number: DSU-2010-06118

PATIENT
  Age: 85 Year
  Sex: Female

DRUGS (5)
  1. AZOR [Suspect]
     Indication: HYPERTENSION
     Dosage: 5/20MG (QD), PER ORAL
     Route: 048
     Dates: start: 20100520, end: 20100801
  2. POTASSIUM (POTASSIUM) (TABLET) (POTASSIUM) [Suspect]
     Indication: PRODUCT USED FOR UNKNOWN INDICATION
     Dosage: (3 TABLETS QD),PER ORAL
     Route: 048
     Dates: end: 20100801
  3. LASIX [Concomitant]
  4. ANTIHYPERTENSIVES (ANTIHYPERTENSIVES) [Concomitant]
  5. UNKNOWN THYROID MEDICATION (INGREDIENTS UNSPECIFIED) (THYROID THERAPY) [Concomitant]

REACTIONS (6)
  - BACK PAIN [None]
  - BLOOD PRESSURE INCREASED [None]
  - CARDIAC FAILURE CONGESTIVE [None]
  - DRUG INTERACTION [None]
  - MALAISE [None]
  - WEIGHT DECREASED [None]
